FAERS Safety Report 10844228 (Version 2)
Quarter: 2015Q1

REPORT INFORMATION
  Report Type: Report from Study
  Country: DE (occurrence: DE)
  Receive Date: 20150220
  Receipt Date: 20150224
  Transmission Date: 20150721
  Serious: Yes (Hospitalization)
  Sender: FDA-Public Use
  Company Number: DE-ABBVIE-12P-062-0951418-00

PATIENT
  Age: 47 Year
  Sex: Female

DRUGS (3)
  1. HUMIRA [Suspect]
     Active Substance: ADALIMUMAB
     Indication: PRODUCT USED FOR UNKNOWN INDICATION
     Route: 058
     Dates: start: 20120601
  2. IBUPROFEN RETARD [Concomitant]
     Indication: PRODUCT USED FOR UNKNOWN INDICATION
  3. ASA 500 [Concomitant]
     Indication: PRODUCT USED FOR UNKNOWN INDICATION

REACTIONS (10)
  - Disturbance in attention [Not Recovered/Not Resolved]
  - Increased appetite [Recovered/Resolved]
  - Illusion [Not Recovered/Not Resolved]
  - Computerised tomogram head abnormal [Not Recovered/Not Resolved]
  - Headache [Unknown]
  - Mood altered [Recovered/Resolved]
  - Vasculitis cerebral [Not Recovered/Not Resolved]
  - Fatigue [Recovered/Resolved]
  - Nonspecific reaction [Not Recovered/Not Resolved]
  - Hormone level abnormal [Recovered/Resolved]

NARRATIVE: CASE EVENT DATE: 2012
